FAERS Safety Report 7279908-8 (Version None)
Quarter: 2011Q1

REPORT INFORMATION
  Report Type: 
  Country: None (occurrence: None)
  Receive Date: 20110208
  Receipt Date: 20110126
  Transmission Date: 20110831
  Serious: Yes (Hospitalization, Other)
  Sender: FDA-Public Use
  Company Number: DE-ELI_LILLY_AND_COMPANY-DE201101006607

PATIENT
  Age: 81 Year
  Sex: Male

DRUGS (6)
  1. VITAMIN D [Concomitant]
  2. MARCUMAR [Concomitant]
  3. ANTIHYPERTENSIVES [Concomitant]
  4. THYROXIN [Concomitant]
  5. FORTEO [Suspect]
     Indication: OSTEOPOROSIS
     Route: 058
     Dates: start: 20100126, end: 20101001
  6. CALCIUM [Concomitant]

REACTIONS (3)
  - PROSTATE CANCER [None]
  - MICTURITION URGENCY [None]
  - INCONTINENCE [None]
